FAERS Safety Report 25300220 (Version 1)
Quarter: 2025Q2

REPORT INFORMATION
  Report Type: Spontaneous
  Country: US (occurrence: None)
  Receive Date: 20250510
  Receipt Date: 20250510
  Transmission Date: 20250717
  Serious: Yes (unspecified)
  Sender: FDA-CTU
  Company Number: None

PATIENT
  Age: 72 Year
  Sex: Male
  Weight: 87.3 kg

DRUGS (4)
  1. INFED [Suspect]
     Active Substance: IRON DEXTRAN
     Indication: Anaemia
     Route: 042
     Dates: start: 20250508, end: 20250508
  2. LIPITOR [Concomitant]
     Active Substance: ATORVASTATIN CALCIUM
  3. LISINOPRIL [Concomitant]
     Active Substance: LISINOPRIL
  4. PANTOPRAZOLE [Concomitant]
     Active Substance: PANTOPRAZOLE

REACTIONS (10)
  - Anaphylactic shock [None]
  - Vomiting [None]
  - Erythema [None]
  - Erythema [None]
  - Chest discomfort [None]
  - Tremor [None]
  - Muscle spasms [None]
  - Myalgia [None]
  - Muscle spasms [None]
  - Restless legs syndrome [None]

NARRATIVE: CASE EVENT DATE: 20250508
